FAERS Safety Report 5060066-5 (Version None)
Quarter: 2006Q2

REPORT INFORMATION
  Report Type: 
  Country: None (occurrence: None)
  Receive Date: 20060630
  Receipt Date: 20060206
  Transmission Date: 20061013
  Serious: Yes (Hospitalization)
  Sender: FDA-Public Use
  Company Number: 435351

PATIENT
  Age: 61 Year
  Sex: Female

DRUGS (1)
  1. CELLCEPT [Suspect]
     Indication: MYASTHENIA GRAVIS

REACTIONS (1)
  - CYSTITIS [None]
